FAERS Safety Report 12755933 (Version 2)
Quarter: 2016Q3

REPORT INFORMATION
  Report Type: Spontaneous
  Country: NO (occurrence: NO)
  Receive Date: 20160916
  Receipt Date: 20160923
  Transmission Date: 20161109
  Serious: Yes (Hospitalization)
  Sender: FDA-Public Use
  Company Number: NO-PFIZER INC-2016430833

PATIENT
  Age: 12 Year
  Sex: Male

DRUGS (2)
  1. DALACIN [Suspect]
     Active Substance: CLINDAMYCIN\CLINDAMYCIN PHOSPHATE
     Indication: ANTIBIOTIC PROPHYLAXIS
     Dates: start: 20160824, end: 20160825
  2. DICLOCIL [Suspect]
     Active Substance: DICLOXACILLIN SODIUM
     Indication: ANTIBIOTIC PROPHYLAXIS
     Dosage: 500 MG, 5X/DAY
     Dates: start: 20160822, end: 20160824

REACTIONS (3)
  - Rash maculo-papular [Recovered/Resolved]
  - Mouth haemorrhage [Recovered/Resolved]
  - Pyrexia [Recovered/Resolved]

NARRATIVE: CASE EVENT DATE: 201608
